FAERS Safety Report 23495976 (Version 1)
Quarter: 2024Q1

REPORT INFORMATION
  Report Type: Report from Study
  Country: US (occurrence: US)
  Receive Date: 20240207
  Receipt Date: 20240207
  Transmission Date: 20240410
  Serious: Yes (Hospitalization)
  Sender: FDA-Public Use
  Company Number: US-AMX-003572

PATIENT
  Age: 71 Year
  Sex: Male

DRUGS (1)
  1. RELYVRIO [Suspect]
     Active Substance: SODIUM PHENYLBUTYRATE\TAURURSODIOL
     Indication: Amyotrophic lateral sclerosis
     Dosage: 1 SACHET ONCE DAILY FOR 3 WEEKS, THEN 1 SACHET TWICE DAILY
     Route: 048

REACTIONS (10)
  - Head injury [Recovering/Resolving]
  - Brain operation [Recovering/Resolving]
  - Asthenia [Unknown]
  - Foot fracture [Recovering/Resolving]
  - Peripheral swelling [Unknown]
  - Product use complaint [Unknown]
  - Memory impairment [Unknown]
  - Abdominal pain upper [Unknown]
  - Fatigue [Unknown]
  - Fall [Recovering/Resolving]
